FAERS Safety Report 12417874 (Version 2)
Quarter: 2016Q2

REPORT INFORMATION
  Report Type: Spontaneous
  Country: DK (occurrence: DK)
  Receive Date: 20160531
  Receipt Date: 20160531
  Transmission Date: 20160815
  Serious: Yes (Other)
  Sender: FDA-Public Use
  Company Number: DK-AUROBINDO-AUR-APL-2016-06293

PATIENT
  Age: 42 Year
  Sex: Female

DRUGS (1)
  1. SUMATRIPTAN. [Suspect]
     Active Substance: SUMATRIPTAN
     Indication: PRODUCT USED FOR UNKNOWN INDICATION
     Dosage: 100 MG, UNK
     Route: 065
     Dates: start: 201210, end: 20150815

REACTIONS (9)
  - Peripheral swelling [Unknown]
  - Palpitations [Unknown]
  - Sluggishness [Unknown]
  - Chest discomfort [Unknown]
  - Hypotonia [Unknown]
  - Vomiting [Unknown]
  - Myalgia [Unknown]
  - Asthenia [Unknown]
  - Abdominal discomfort [Unknown]

NARRATIVE: CASE EVENT DATE: 20140901
